FAERS Safety Report 4546153-6 (Version None)
Quarter: 2005Q1

REPORT INFORMATION
  Report Type: 
  Country: None (occurrence: None)
  Receive Date: 20050105
  Receipt Date: 20050105
  Transmission Date: 20050727
  Serious: Yes (Hospitalization)
  Sender: FDA-Public Use
  Company Number: None

PATIENT
  Age: 50 Year
  Sex: Female
  Weight: 105 kg

DRUGS (6)
  1. COLISTIN  150MG [Suspect]
     Indication: ACINETOBACTER INFECTION
     Dosage: 150MG  Q12H INTRAVENOUS
     Route: 042
     Dates: start: 20041022, end: 20041026
  2. COLISTIN  150MG [Suspect]
     Indication: SPINAL DISORDER
     Dosage: 150MG  Q12H INTRAVENOUS
     Route: 042
     Dates: start: 20041022, end: 20041026
  3. MINOCYCLINE HCL [Concomitant]
  4. PANTOPRAZOLE SODIUM [Concomitant]
  5. VANCOMYCIN [Concomitant]
  6. RIFAMPIN [Concomitant]

REACTIONS (2)
  - BLOOD CREATININE INCREASED [None]
  - RENAL IMPAIRMENT [None]
